FAERS Safety Report 8140528-4 (Version None)
Quarter: 2012Q1

REPORT INFORMATION
  Report Type: 
  Country: None (occurrence: None)
  Receive Date: 20120214
  Receipt Date: 20120214
  Transmission Date: 20120608
  Serious: Yes (Hospitalization)
  Sender: FDA-Public Use
  Company Number: None

PATIENT
  Sex: Male
  Weight: 121.24 kg

DRUGS (1)
  1. ERBITUX [Suspect]
     Dosage: 250 MG

REACTIONS (3)
  - DYSPHAGIA [None]
  - DEHYDRATION [None]
  - HYPOPHAGIA [None]
